FAERS Safety Report 16631334 (Version 1)
Quarter: 2019Q3

REPORT INFORMATION
  Report Type: Spontaneous
  Country: US (occurrence: US)
  Receive Date: 20190725
  Receipt Date: 20190725
  Transmission Date: 20191004
  Serious: No
  Sender: FDA-Public Use
  Company Number: US-AMGEN-USASP2019117064

PATIENT
  Age: 51 Year
  Sex: Male

DRUGS (3)
  1. METROGEL [Concomitant]
     Active Substance: METRONIDAZOLE
     Indication: ROSACEA
  2. ENBREL [Suspect]
     Active Substance: ETANERCEPT
     Indication: PSORIATIC ARTHROPATHY
     Dosage: 50 MILLIGRAM, QWK
     Route: 065
     Dates: start: 2003
  3. METROGEL [Concomitant]
     Active Substance: METRONIDAZOLE
     Indication: WOUND
     Dosage: UNK UNK, AS NECESSARY
     Route: 061

REACTIONS (5)
  - Therapeutic product effect incomplete [Unknown]
  - Injection site pain [Unknown]
  - Arthropod sting [Unknown]
  - Pain in extremity [Unknown]
  - Infection [Recovered/Resolved]

NARRATIVE: CASE EVENT DATE: 2003
